FAERS Safety Report 23809325 (Version 1)
Quarter: 2024Q2

REPORT INFORMATION
  Report Type: Spontaneous
  Country: US (occurrence: None)
  Receive Date: 20240501
  Receipt Date: 20240501
  Transmission Date: 20240716
  Serious: No
  Sender: FDA-Public Use
  Company Number: None

PATIENT
  Age: 79 Year
  Sex: Female

DRUGS (1)
  1. REPATHA [Suspect]
     Active Substance: EVOLOCUMAB
     Indication: Hyperlipidaemia
     Dosage: 140 MG EVERY TWO WEEKS SUBCUTANEOUS
     Route: 058
     Dates: start: 20240228, end: 20240501

REACTIONS (6)
  - Lymphadenopathy [None]
  - Swelling [None]
  - Swelling face [None]
  - Dyspnoea [None]
  - Abdominal pain upper [None]
  - Cough [None]

NARRATIVE: CASE EVENT DATE: 20240501
